FAERS Safety Report 16131994 (Version 1)
Quarter: 2019Q1

REPORT INFORMATION
  Report Type: Spontaneous
  Country: FR (occurrence: FR)
  Receive Date: 20190329
  Receipt Date: 20190329
  Transmission Date: 20190418
  Serious: Yes (Other)
  Sender: FDA-Public Use
  Company Number: FR-ROCHE-2292451

PATIENT
  Age: 33 Year
  Sex: Male

DRUGS (4)
  1. UROMITEXAN [Concomitant]
     Active Substance: MESNA
     Indication: ANTIVIRAL PROPHYLAXIS
     Dosage: MOST RECENT DOSE OF UROMITEXAN WAS ON 31/MAY/2017.
     Route: 048
     Dates: start: 20161229, end: 20170531
  2. MABTHERA [Suspect]
     Active Substance: RITUXIMAB
     Indication: NON-HODGKIN^S LYMPHOMA
     Dosage: MOST RECENT DOSE OF RITUXIMAB WAS ON 31/MAY/2017.
     Route: 042
     Dates: start: 20161229
  3. ETOPOSIDE. [Suspect]
     Active Substance: ETOPOSIDE
     Indication: NON-HODGKIN^S LYMPHOMA
     Dosage: MOST RECENT DOSE OF ETOPOSIDE WAS ON 31/MAY/2017.
     Route: 042
     Dates: start: 20170418
  4. IFOSFAMIDE. [Suspect]
     Active Substance: IFOSFAMIDE
     Indication: NON-HODGKIN^S LYMPHOMA
     Dosage: MOST RECENT DOSE OF IFOSFAMIDE WAS ON 31/MAY/2017.
     Route: 042
     Dates: start: 20170418

REACTIONS (1)
  - Subacute cutaneous lupus erythematosus [Not Recovered/Not Resolved]

NARRATIVE: CASE EVENT DATE: 2017
